FAERS Safety Report 4777640-3 (Version None)
Quarter: 2005Q3

REPORT INFORMATION
  Report Type: 
  Country: None (occurrence: None)
  Receive Date: 20050921
  Receipt Date: 20050902
  Transmission Date: 20060218
  Serious: Yes (Death)
  Sender: FDA-Public Use
  Company Number: USA0509107438

PATIENT

DRUGS (1)
  1. XIGRIS [Suspect]
     Dosage: 24 UG/KG/HR

REACTIONS (1)
  - DEATH [None]
